FAERS Safety Report 24419966 (Version 2)
Quarter: 2024Q4

REPORT INFORMATION
  Report Type: Spontaneous
  Country: FR (occurrence: FR)
  Receive Date: 20241010
  Receipt Date: 20241018
  Transmission Date: 20250115
  Serious: No
  Sender: ROCHE
  Company Number: None

PATIENT
  Age: 88 Year
  Sex: Male
  Weight: 76.6 kg

DRUGS (2)
  1. ALTEPLASE [Suspect]
     Active Substance: ALTEPLASE
     Indication: Thrombolysis
     Dosage: FREQUENCY TEXT:1
     Route: 042
     Dates: start: 20240126
  2. ULTRAVIST [Suspect]
     Active Substance: IOPROMIDE
     Indication: Computerised tomogram
     Dosage: FREQUENCY TEXT:1
     Route: 042
     Dates: start: 20240126

REACTIONS (1)
  - Erythema [Recovered/Resolved]
